FAERS Safety Report 19921373 (Version 1)
Quarter: 2021Q4

REPORT INFORMATION
  Report Type: Spontaneous
  Country: CA (occurrence: CA)
  Receive Date: 20211005
  Receipt Date: 20211005
  Transmission Date: 20220303
  Serious: Yes (Other)
  Sender: FDA-Public Use
  Company Number: CA-TEVA-2021-CA-1961984

PATIENT
  Sex: Male

DRUGS (4)
  1. TAMSULOSIN [Suspect]
     Active Substance: TAMSULOSIN
     Indication: Lower urinary tract symptoms
     Dosage: .4 MILLIGRAM DAILY;
     Route: 065
  2. TAMSULOSIN [Suspect]
     Active Substance: TAMSULOSIN
     Indication: Benign prostatic hyperplasia
  3. MIRABEGRON [Suspect]
     Active Substance: MIRABEGRON
     Indication: Hypertonic bladder
     Route: 065
  4. MIRABEGRON [Suspect]
     Active Substance: MIRABEGRON
     Route: 065

REACTIONS (2)
  - Acute myocardial infarction [Unknown]
  - Cerebral infarction [Unknown]
